FAERS Safety Report 7425688-2 (Version None)
Quarter: 2011Q2

REPORT INFORMATION
  Report Type: 
  Country: None (occurrence: None)
  Receive Date: 20110420
  Receipt Date: 20110406
  Transmission Date: 20111010
  Serious: Yes (Hospitalization, Other)
  Sender: FDA-Public Use
  Company Number: US-ELI_LILLY_AND_COMPANY-US201002005199

PATIENT
  Sex: Female

DRUGS (16)
  1. ABILIFY [Concomitant]
     Dosage: 20 MG, DAILY (1/D)
  2. RELAFEN [Concomitant]
     Dosage: 500 MG, 2/D
  3. LORTAB [Concomitant]
     Dosage: 7.5 MG, 3/D
     Dates: start: 20090101
  4. CALCIUM WITH VITAMIN D /00944201/ [Concomitant]
     Dosage: 600 MG, UNK
     Dates: start: 20090101
  5. PREDNISONE [Concomitant]
     Dosage: 5 MG, DAILY (1/D)
     Dates: start: 19960101
  6. CARDIZEM CD [Concomitant]
     Dosage: 120 MG, DAILY (1/D)
     Dates: start: 20091001
  7. METHOTREXATE [Concomitant]
     Dosage: 2.5 MG, 5/W
  8. LIDODERM [Concomitant]
     Dosage: UNK, AS NEEDED
  9. FORTEO [Suspect]
     Dosage: 20 UG, QD
  10. PROMETHAZINE [Concomitant]
     Dosage: 12 MG, AS NEEDED
     Dates: start: 20090101
  11. OMEPRAZOLE [Concomitant]
     Dosage: 20 MG, DAILY (1/D)
  12. MORPHINE [Concomitant]
     Dosage: 60 MG, 2/D
     Dates: start: 20090101
  13. FORTEO [Suspect]
     Indication: OSTEOPOROSIS
     Dosage: 20 UG, DAILY (1/D)
     Dates: start: 20090101
  14. LUNESTA [Concomitant]
     Dosage: 2 MG, EACH EVENING
     Dates: start: 20091001
  15. AMIODARONE [Concomitant]
     Dosage: 100 MG, 2/D
     Dates: start: 20091001
  16. SPIRIVA [Concomitant]
     Dosage: UNK, DAILY (1/D)
     Dates: start: 20091001

REACTIONS (5)
  - CARDIAC FAILURE [None]
  - HOSPITALISATION [None]
  - MALAISE [None]
  - PNEUMONIA [None]
  - FLUID RETENTION [None]
